FAERS Safety Report 10261199 (Version 2)
Quarter: 2014Q2

REPORT INFORMATION
  Report Type: Spontaneous
  Country: FR (occurrence: FR)
  Receive Date: 20140626
  Receipt Date: 20140626
  Transmission Date: 20141212
  Serious: Yes (Other)
  Sender: FDA-Public Use
  Company Number: FR-JNJFOC-20140514967

PATIENT
  Age: 65 Year
  Sex: Male
  Weight: 70 kg

DRUGS (9)
  1. SIMPONI [Suspect]
     Indication: ANKYLOSING SPONDYLITIS
     Route: 058
     Dates: start: 201311, end: 201405
  2. MOSCONTIN [Concomitant]
     Indication: PAIN
     Route: 048
     Dates: start: 2010
  3. EUPANTOL [Concomitant]
     Indication: GASTRITIS
     Route: 065
     Dates: start: 2011
  4. DIAMICRON [Concomitant]
     Indication: DIABETES MELLITUS
     Route: 065
     Dates: start: 2000
  5. GLUCOPHAGE [Concomitant]
     Indication: DIABETES MELLITUS
     Route: 065
     Dates: start: 2000
  6. GLUCOR [Concomitant]
     Indication: DIABETES MELLITUS
     Route: 065
     Dates: start: 2005
  7. KARDEGIC [Concomitant]
     Indication: EYE DISORDER
     Dosage: 75 (UNITS UNSPECIFIED)
     Route: 065
     Dates: start: 2000
  8. STILNOX [Concomitant]
     Indication: INSOMNIA
     Dosage: 10 (UNITS UNSPECIFIED)
     Route: 065
     Dates: start: 2012
  9. ENBREL [Concomitant]
     Indication: SPONDYLITIS
     Route: 065
     Dates: start: 2014

REACTIONS (8)
  - Constipation [Recovered/Resolved]
  - Abdominal pain [Recovered/Resolved]
  - Dysuria [Recovered/Resolved]
  - Visual impairment [Recovered/Resolved]
  - Dizziness [Recovered/Resolved]
  - Diabetes mellitus inadequate control [Recovered/Resolved]
  - Bronchitis [Recovered/Resolved]
  - Cough [Unknown]
